FAERS Safety Report 9419242 (Version 1)
Quarter: 2013Q3

REPORT INFORMATION
  Report Type: Spontaneous
  Country: US (occurrence: US)
  Receive Date: 20130725
  Receipt Date: 20130725
  Transmission Date: 20140515
  Serious: No
  Sender: FDA-Public Use
  Company Number: US-GLAXOSMITHKLINE-A0984453A

PATIENT
  Age: 51 Year
  Sex: Male

DRUGS (5)
  1. LAMICTAL [Suspect]
     Indication: EPILEPSY
     Dosage: 50MG PER DAY
     Route: 048
     Dates: start: 20120710
  2. GABAPENTIN [Suspect]
     Dosage: 600MG THREE TIMES PER DAY
     Dates: start: 201204, end: 20120709
  3. TEGRETOL [Concomitant]
  4. XANAX [Concomitant]
  5. RISPERDAL [Concomitant]

REACTIONS (4)
  - Hyperhidrosis [Not Recovered/Not Resolved]
  - Dry mouth [Unknown]
  - Fatigue [Unknown]
  - Withdrawal syndrome [Unknown]
